FAERS Safety Report 4970865-3 (Version None)
Quarter: 2006Q2

REPORT INFORMATION
  Report Type: 
  Country: None (occurrence: None)
  Receive Date: 20060406
  Receipt Date: 20060322
  Transmission Date: 20061013
  Serious: Yes (Life-Threatening, Hospitalization)
  Sender: FDA-Public Use
  Company Number: DE200603005934

PATIENT
  Age: 59 Year
  Sex: Female
  Weight: 163 kg

DRUGS (1)
  1. YENTREVE [Suspect]
     Indication: URINARY INCONTINENCE
     Dosage: 40 MG, DAILY (1/D), ORAL
     Route: 048
     Dates: start: 20051207

REACTIONS (1)
  - BREAST CANCER FEMALE [None]
